FAERS Safety Report 4688318-9 (Version None)
Quarter: 2005Q2

REPORT INFORMATION
  Report Type: 
  Country: None (occurrence: None)
  Receive Date: 20050610
  Receipt Date: 20050310
  Transmission Date: 20051028
  Serious: Yes (Hospitalization)
  Sender: FDA-Public Use
  Company Number: US-MERCK-0503USA02277

PATIENT
  Age: 63 Year
  Sex: Female
  Weight: 120 kg

DRUGS (6)
  1. VIOXX [Suspect]
     Indication: ARTHRALGIA
     Route: 048
     Dates: start: 20000417, end: 20000517
  2. VIOXX [Suspect]
     Route: 048
     Dates: start: 20000823, end: 20010624
  3. VIOXX [Suspect]
     Route: 048
     Dates: start: 20010701, end: 20020101
  4. LOTENSIN [Concomitant]
     Route: 065
     Dates: start: 20000807
  5. LOTENSIN [Concomitant]
     Route: 065
     Dates: start: 20000807
  6. ASPIRIN [Concomitant]
     Route: 065

REACTIONS (35)
  - BALANCE DISORDER [None]
  - BRAIN STEM ISCHAEMIA [None]
  - BRAIN STEM SYNDROME [None]
  - CARDIAC MURMUR [None]
  - CAROTID ARTERY STENOSIS [None]
  - CEREBROVASCULAR ACCIDENT [None]
  - DIFFICULTY IN WALKING [None]
  - DIPLOPIA [None]
  - DIZZINESS [None]
  - DYSPNOEA [None]
  - EMOTIONAL DISTRESS [None]
  - EPILEPSY [None]
  - EYE MOVEMENT DISORDER [None]
  - GINGIVAL BLEEDING [None]
  - HYPERTENSION [None]
  - IIIRD NERVE PARALYSIS [None]
  - INSOMNIA [None]
  - INTERNATIONAL NORMALISED RATIO INCREASED [None]
  - INTRACRANIAL PRESSURE INCREASED [None]
  - MUSCLE SPASMS [None]
  - NUCLEAR MAGNETIC RESONANCE IMAGING BRAIN ABNORMAL [None]
  - NYSTAGMUS [None]
  - PAIN [None]
  - PALPITATIONS [None]
  - PHARYNGEAL HAEMORRHAGE [None]
  - PHOTOPHOBIA [None]
  - REFLEXES ABNORMAL [None]
  - STOMACH DISCOMFORT [None]
  - STOMATITIS [None]
  - SYSTEMIC LUPUS ERYTHEMATOSUS [None]
  - TINNITUS [None]
  - TRANSIENT ISCHAEMIC ATTACK [None]
  - VERTIGO [None]
  - VISION BLURRED [None]
  - VITH NERVE PARALYSIS [None]
